FAERS Safety Report 17445594 (Version 1)
Quarter: 2020Q1

REPORT INFORMATION
  Report Type: Spontaneous
  Country: GB (occurrence: GB)
  Receive Date: 20200221
  Receipt Date: 20200221
  Transmission Date: 20200409
  Serious: Yes (Other)
  Sender: FDA-Public Use
  Company Number: GB-UCBSA-2020007633

PATIENT

DRUGS (1)
  1. KEPPRA [Suspect]
     Active Substance: LEVETIRACETAM
     Indication: NEONATAL SEIZURE
     Dosage: UNK

REACTIONS (7)
  - Hyperkinesia [Unknown]
  - Drug ineffective [Unknown]
  - Respiratory depression [Unknown]
  - Irritability [Unknown]
  - Electrolyte imbalance [Unknown]
  - Somnolence [Unknown]
  - Feeling jittery [Unknown]
